FAERS Safety Report 6430759-3 (Version None)
Quarter: 2009Q4

REPORT INFORMATION
  Report Type: 
  Country: None (occurrence: None)
  Receive Date: 20091106
  Receipt Date: 20091103
  Transmission Date: 20100525
  Serious: Yes (Other)
  Sender: FDA-Public Use
  Company Number: US-JNJFOC-20091100922

PATIENT
  Age: 51 Year
  Sex: Female
  Weight: 93 kg

DRUGS (6)
  1. FAMOTIDINE [Suspect]
  2. FAMOTIDINE [Suspect]
     Indication: ABDOMINAL PAIN UPPER
  3. CONJUGATED ESTROGENS [Concomitant]
  4. MEDROXYPROGESTERONE [Concomitant]
  5. ACETAMINOPHEN [Concomitant]
     Indication: PAIN
  6. OMEPRAZOLE [Concomitant]
     Indication: DRUG USE FOR UNKNOWN INDICATION

REACTIONS (1)
  - HEPATITIS [None]
